FAERS Safety Report 17574859 (Version 1)
Quarter: 2020Q1

REPORT INFORMATION
  Report Type: Spontaneous
  Country: US (occurrence: US)
  Receive Date: 20200324
  Receipt Date: 20200324
  Transmission Date: 20200409
  Serious: No
  Sender: FDA-Public Use
  Company Number: US-ALEXION PHARMACEUTICALS INC.-A202002429

PATIENT
  Sex: Female

DRUGS (1)
  1. SOLIRIS [Suspect]
     Active Substance: ECULIZUMAB
     Indication: MYASTHENIA GRAVIS
     Dosage: 1200 MG , Q2W
     Route: 042
     Dates: start: 201909

REACTIONS (5)
  - Hypoaesthesia [Unknown]
  - Fatigue [Unknown]
  - Grip strength decreased [Unknown]
  - Paraesthesia [Unknown]
  - Pain [Unknown]
